FAERS Safety Report 19681640 (Version 1)
Quarter: 2021Q3

REPORT INFORMATION
  Report Type: Report from Study
  Country: GR (occurrence: GR)
  Receive Date: 20210810
  Receipt Date: 20210810
  Transmission Date: 20211014
  Serious: Yes (Disabling)
  Sender: FDA-Public Use
  Company Number: GR-PFIZER INC-202101012733

PATIENT
  Age: 59 Year
  Sex: Female
  Weight: 67 kg

DRUGS (6)
  1. CARBOPLATIN. [Suspect]
     Active Substance: CARBOPLATIN
     Indication: SMALL CELL LUNG CANCER
     Dosage: 600 MG, CYCLIC (ONCE EVERY 21 DAYS)
     Route: 042
     Dates: start: 20200225, end: 20200520
  2. AVELUMAB [Suspect]
     Active Substance: AVELUMAB
     Indication: SMALL CELL LUNG CANCER
     Dosage: 800 MG
     Route: 042
     Dates: start: 20200408
  3. APOTEL [Concomitant]
     Active Substance: ACETAMINOPHEN
     Indication: PREMEDICATION
     Dosage: 1 G, CYCLIC (ONCE EVERY 14 DAYS)
     Route: 048
     Dates: start: 20200408, end: 20200520
  4. AVELUMAB [Suspect]
     Active Substance: AVELUMAB
     Dosage: 800 MG
     Route: 042
     Dates: start: 20200520, end: 20200520
  5. ETOPOSIDE. [Suspect]
     Active Substance: ETOPOSIDE
     Indication: SMALL CELL LUNG CANCER
     Dosage: 180 MG, CYCLIC (ONCE EVERY 21 DAYS)
     Route: 042
     Dates: start: 20200225, end: 20200522
  6. AERIUS [Concomitant]
     Indication: PREMEDICATION
     Dosage: 5 MG, CYCLIC (ONCE EVERY 14 DAYS)
     Route: 048
     Dates: start: 20200408, end: 20200520

REACTIONS (1)
  - Arthritis [Not Recovered/Not Resolved]

NARRATIVE: CASE EVENT DATE: 20200520
